FAERS Safety Report 4522648-6 (Version None)
Quarter: 2004Q4

REPORT INFORMATION
  Report Type: 
  Country: None (occurrence: None)
  Receive Date: 20041207
  Receipt Date: 20041122
  Transmission Date: 20050328
  Serious: Yes (Hospitalization)
  Sender: FDA-Public Use
  Company Number: 2004CG02346

PATIENT
  Age: 79 Year
  Sex: Female

DRUGS (9)
  1. OMEPRAZOLE [Suspect]
     Dosage: 20 MG QD PO
     Route: 048
     Dates: start: 20040910, end: 20040922
  2. LASILIX [Suspect]
     Dosage: 40 MG QD PO
     Route: 048
     Dates: start: 20040910, end: 20040921
  3. PREVISCAN [Suspect]
     Dates: start: 20040910, end: 20040922
  4. KALEORID [Suspect]
     Dosage: 1000 MG QD PO
     Route: 048
     Dates: start: 20040910, end: 20040918
  5. NOLVADEX [Concomitant]
  6. ENDOTELON [Concomitant]
  7. COZAAR [Concomitant]
  8. STABLON [Concomitant]
  9. CALCIPARINE ^DIFREX^ [Concomitant]

REACTIONS (5)
  - ACUTE GENERALISED EXANTHEMATOUS PUSTULOSIS [None]
  - CYTOLYTIC HEPATITIS [None]
  - HYPERKALAEMIA [None]
  - HYPONATRAEMIA [None]
  - RENAL FAILURE [None]
